FAERS Safety Report 9439599 (Version 1)
Quarter: 2013Q3

REPORT INFORMATION
  Report Type: Spontaneous
  Country: CA (occurrence: CA)
  Receive Date: 20130805
  Receipt Date: 20130805
  Transmission Date: 20140515
  Serious: Yes (Other)
  Sender: FDA-Public Use
  Company Number: CA-AMGEN-CANSP2013053188

PATIENT
  Age: 79 Year
  Sex: Male

DRUGS (9)
  1. ARANESP [Suspect]
     Indication: RENAL FAILURE CHRONIC
     Dosage: 40 MUG, UNK
     Route: 065
     Dates: start: 20130611
  2. ROCALTROL [Concomitant]
     Dosage: 4 TABLETS
  3. MAGNESIUM [Concomitant]
     Dosage: 20 ML, TID
  4. MULTIVITAMIN                       /00097801/ [Concomitant]
  5. TUMS                               /00193601/ [Concomitant]
     Dosage: 100 MG, UNK
  6. PREDNISONE [Concomitant]
     Dosage: 5 MG, BID
  7. ADALAT [Concomitant]
     Dosage: 20 MG, QD
  8. B12                                /00056201/ [Concomitant]
     Dosage: UNK UNK, QMO
  9. LASIX                              /00032601/ [Concomitant]
     Dosage: 60 MG, UNK

REACTIONS (4)
  - Haemorrhage [Recovering/Resolving]
  - Contusion [Recovering/Resolving]
  - Skin discolouration [Recovering/Resolving]
  - Local swelling [Recovering/Resolving]
